FAERS Safety Report 24132579 (Version 1)
Quarter: 2024Q3

REPORT INFORMATION
  Report Type: Spontaneous
  Country: US (occurrence: None)
  Receive Date: 20240723
  Receipt Date: 20240723
  Transmission Date: 20241017
  Serious: No
  Sender: Public
  Company Number: None

PATIENT
  Age: 31 Month
  Sex: Male
  Weight: 14.85 kg

DRUGS (1)
  1. ORAJEL 3X MEDICATED FOR TOOTHACHE AND GUM [Suspect]
     Active Substance: BENZOCAINE\MENTHOL\ZINC CHLORIDE
     Indication: Therapy interrupted

REACTIONS (2)
  - Product dispensing error [None]
  - Intercepted product dispensing error [None]

NARRATIVE: CASE EVENT DATE: 20240723
